FAERS Safety Report 22830213 (Version 7)
Quarter: 2023Q4

REPORT INFORMATION
  Report Type: Spontaneous
  Country: CA (occurrence: CA)
  Receive Date: 20230816
  Receipt Date: 20231116
  Transmission Date: 20240110
  Serious: Yes (Other)
  Sender: FDA-Public Use
  Company Number: CA-CELLTRION INC.-2023CA016309

PATIENT

DRUGS (10)
  1. INFLECTRA [Suspect]
     Active Substance: INFLIXIMAB-DYYB
     Indication: Crohn^s disease
     Dosage: 400 MG, 0, 2, 6, THEN EVERY 8 WEEKS
     Route: 042
     Dates: start: 20230628, end: 20230809
  2. INFLECTRA [Suspect]
     Active Substance: INFLIXIMAB-DYYB
     Dosage: 400 MG, 0, 2, 6, THEN EVERY 8 WEEKS
     Route: 042
     Dates: start: 20230713
  3. INFLECTRA [Suspect]
     Active Substance: INFLIXIMAB-DYYB
     Dosage: 400 MG, 0, 2, 6, THEN EVERY 8 WEEKS
     Route: 042
     Dates: start: 20230809
  4. INFLECTRA [Suspect]
     Active Substance: INFLIXIMAB-DYYB
     Dosage: 800 MG, EVERY 4 WEEK (800MG AFTER 8 WEEKS)
     Route: 042
     Dates: start: 20231004
  5. INFLECTRA [Suspect]
     Active Substance: INFLIXIMAB-DYYB
     Dosage: 800 MG, EVERY 4 WEEK (800MG AFTER 8 WEEKS)
     Route: 042
     Dates: start: 20231004
  6. ENTOCORT [Concomitant]
     Active Substance: BUDESONIDE
     Dosage: UNK
  7. ENTOCORT [Concomitant]
     Active Substance: BUDESONIDE
     Dosage: 9 MG, DAILY WITH TAPERED BY 3 MG EVERY MONTHS FOR DISCONTINUATION
     Route: 048
  8. ENTYVIO [Concomitant]
     Active Substance: VEDOLIZUMAB
     Dosage: UNK
  9. PREDNISONE [Concomitant]
     Active Substance: PREDNISONE
     Dosage: 35 MG, DAILY
  10. CHOLECALCIFEROL [Concomitant]
     Active Substance: CHOLECALCIFEROL
     Dosage: UNK

REACTIONS (21)
  - Condition aggravated [Not Recovered/Not Resolved]
  - Blastocystis infection [Unknown]
  - Therapeutic product effect incomplete [Unknown]
  - Drug specific antibody present [Unknown]
  - Arthralgia [Unknown]
  - Prostatomegaly [Unknown]
  - Polyuria [Unknown]
  - Poor quality sleep [Unknown]
  - Constipation [Unknown]
  - Flatulence [Unknown]
  - Faecal calprotectin increased [Unknown]
  - Haemoglobin decreased [Unknown]
  - Haematocrit decreased [Unknown]
  - Anaemia [Unknown]
  - Serum ferritin decreased [Unknown]
  - Iron deficiency [Unknown]
  - Red blood cell count decreased [Unknown]
  - Charcot-Leyden crystals [Unknown]
  - Weight decreased [Unknown]
  - Off label use [Unknown]
  - Off label use [Unknown]

NARRATIVE: CASE EVENT DATE: 20230101
